FAERS Safety Report 21663185 (Version 1)
Quarter: 2022Q4

REPORT INFORMATION
  Report Type: Spontaneous
  Country: US (occurrence: US)
  Receive Date: 20221130
  Receipt Date: 20221130
  Transmission Date: 20230113
  Serious: Yes (Life-Threatening, Hospitalization, Other)
  Sender: FDA-Public Use
  Company Number: US-PFIZER INC-PV202200111179

PATIENT
  Age: 53 Year
  Sex: Female

DRUGS (2)
  1. CEFEPIME HYDROCHLORIDE [Suspect]
     Active Substance: CEFEPIME HYDROCHLORIDE
     Indication: Renal impairment
     Dosage: 2 G, 3X/DAY (EVERY 8 HOURS)
     Route: 042
  2. VANCOMYCIN HYDROCHLORIDE [Suspect]
     Active Substance: VANCOMYCIN HYDROCHLORIDE
     Indication: Renal impairment
     Dosage: 2G, 2X/DAY (FOR EVERY 12HRS)
     Route: 042

REACTIONS (1)
  - Neurotoxicity [Recovered/Resolved]
